FAERS Safety Report 5724388-4 (Version None)
Quarter: 2008Q2

REPORT INFORMATION
  Report Type: 
  Country: None (occurrence: None)
  Receive Date: 20080429
  Receipt Date: 20080414
  Transmission Date: 20081010
  Serious: Yes (Hospitalization)
  Sender: FDA-Public Use
  Company Number: L08-JPN-01473-02

PATIENT
  Age: 1 Year
  Sex: Male

DRUGS (1)
  1. THEOPHYLLINE [Suspect]
     Indication: ASTHMA

REACTIONS (4)
  - CONVULSION [None]
  - EPILEPSY [None]
  - HEMIPLEGIA [None]
  - PYREXIA [None]
